FAERS Safety Report 5966390-3 (Version None)
Quarter: 2008Q4

REPORT INFORMATION
  Report Type: 
  Country: None (occurrence: None)
  Receive Date: 20081119
  Receipt Date: 20080721
  Transmission Date: 20090506
  Serious: No
  Sender: FDA-Public Use
  Company Number: WAES 0807USA04080

PATIENT
  Sex: Female

DRUGS (1)
  1. JANUVIA [Suspect]
     Dosage: PO
     Route: 048
     Dates: start: 20080321, end: 20080719

REACTIONS (8)
  - DYSPHAGIA [None]
  - DYSPNOEA [None]
  - EPISTAXIS [None]
  - HEADACHE [None]
  - LIP SWELLING [None]
  - MUSCLE SPASMS [None]
  - PHARYNGEAL OEDEMA [None]
  - UPPER RESPIRATORY TRACT INFECTION [None]
